FAERS Safety Report 6920222-5 (Version None)
Quarter: 2010Q3

REPORT INFORMATION
  Report Type: 
  Country: None (occurrence: None)
  Receive Date: 20100809
  Receipt Date: 20100618
  Transmission Date: 20110219
  Serious: Yes (Life-Threatening, Hospitalization)
  Sender: FDA-Public Use
  Company Number: BVT-000479

PATIENT
  Sex: Female
  Weight: 68.9467 kg

DRUGS (3)
  1. KINERET [Suspect]
     Indication: STILL'S DISEASE ADULT ONSET
     Dosage: (100 MG), (100 MG BID)
     Dates: start: 20090301, end: 20091001
  2. KINERET [Suspect]
     Indication: STILL'S DISEASE ADULT ONSET
     Dosage: (100 MG), (100 MG BID)
     Dates: start: 20091001, end: 20091214
  3. METHOTREXATE [Concomitant]

REACTIONS (2)
  - DRUG INEFFECTIVE [None]
  - DRUG SPECIFIC ANTIBODY PRESENT [None]
